FAERS Safety Report 24919900 (Version 1)
Quarter: 2025Q1

REPORT INFORMATION
  Report Type: Report from Study
  Country: US (occurrence: US)
  Receive Date: 20250204
  Receipt Date: 20250204
  Transmission Date: 20250409
  Serious: No
  Sender: EXELIXIS
  Company Number: US-EXELIXIS-CABO-24072518

PATIENT
  Age: 48 Year
  Sex: Male

DRUGS (1)
  1. CABOMETYX [Suspect]
     Active Substance: CABOZANTINIB S-MALATE
     Indication: Renal cancer
     Dosage: 40 MG, QD
     Route: 048

REACTIONS (6)
  - Limb discomfort [Unknown]
  - Dry throat [Not Recovered/Not Resolved]
  - Tongue discomfort [Unknown]
  - Oral discomfort [Unknown]
  - Nausea [Unknown]
  - Mastication disorder [Unknown]

NARRATIVE: CASE EVENT DATE: 20240104
